FAERS Safety Report 19906489 (Version 1)
Quarter: 2021Q3

REPORT INFORMATION
  Report Type: Spontaneous
  Country: CA (occurrence: CA)
  Receive Date: 20210930
  Receipt Date: 20210930
  Transmission Date: 20211014
  Serious: Yes (Death, Life-Threatening, Hospitalization)
  Sender: FDA-Public Use
  Company Number: CA-NOSTRUM LABORATORIES, INC.-2119007

PATIENT
  Age: 53 Year
  Sex: Female

DRUGS (4)
  1. CLONAZEPAM. [Concomitant]
     Active Substance: CLONAZEPAM
     Route: 048
  2. PAROXETINE. [Concomitant]
     Active Substance: PAROXETINE
     Route: 048
  3. NITROFURANTOIN. [Suspect]
     Active Substance: NITROFURANTOIN
     Indication: PROPHYLAXIS
     Route: 048
  4. ESZOPICLONE. [Concomitant]
     Active Substance: ESZOPICLONE
     Route: 048

REACTIONS (2)
  - Hepatic encephalopathy [Fatal]
  - Acute on chronic liver failure [Fatal]
